FAERS Safety Report 8322867-7 (Version None)
Quarter: 2012Q2

REPORT INFORMATION
  Report Type: 
  Country: None (occurrence: None)
  Receive Date: 20120430
  Receipt Date: 20110429
  Transmission Date: 20120825
  Serious: Yes (Other)
  Sender: FDA-Public Use
  Company Number: US-TEVA-2011002126

PATIENT
  Sex: Female
  Weight: 45.4 kg

DRUGS (3)
  1. LEVOXYL [Concomitant]
     Dates: start: 20070101
  2. KLONOPIN [Concomitant]
     Dates: start: 20100401
  3. PROVIGIL [Suspect]
     Indication: FATIGUE
     Route: 048
     Dates: start: 20101001

REACTIONS (4)
  - INSOMNIA [None]
  - HEADACHE [None]
  - DIARRHOEA [None]
  - PERSONALITY CHANGE [None]
